FAERS Safety Report 6232871-0 (Version None)
Quarter: 2009Q2

REPORT INFORMATION
  Report Type: 
  Country: None (occurrence: None)
  Receive Date: 20090617
  Receipt Date: 20090225
  Transmission Date: 20091009
  Serious: No
  Sender: FDA-Public Use
  Company Number: US-ASTRAZENECA-2009UW06443

PATIENT
  Age: 64 Year
  Sex: Female

DRUGS (3)
  1. FASLODEX [Suspect]
     Indication: BREAST CANCER RECURRENT
     Dosage: UNKNOWN
     Route: 042
     Dates: start: 20090115
  2. FASLODEX [Suspect]
     Dosage: UNKNOWN
     Route: 042
     Dates: start: 20090201
  3. COUMADIN [Concomitant]

REACTIONS (2)
  - EPISTAXIS [None]
  - FATIGUE [None]
